FAERS Safety Report 4880398-0 (Version None)
Quarter: 2005Q4

REPORT INFORMATION
  Report Type: 
  Country: None (occurrence: None)
  Receive Date: 20051223
  Receipt Date: 20051013
  Transmission Date: 20060501
  Serious: No
  Sender: FDA-Public Use
  Company Number: 05P-163-0313587-00

PATIENT
  Age: 69 Year
  Sex: Female
  Weight: 58.9676 kg

DRUGS (6)
  1. HUMIRA [Suspect]
     Indication: RHEUMATOID ARTHRITIS
     Dosage: 40 MG, 1 IN 2 WK, SUBCUTANEOUS
     Route: 058
     Dates: start: 20050830
  2. ESOMEPRAZOLE [Concomitant]
  3. FEXOFENADINE HYDROCHLORIDE [Concomitant]
  4. RISEDRONATE SODIUM [Concomitant]
  5. CENTRUM SILVER [Concomitant]
  6. PARACETAMOL [Concomitant]

REACTIONS (3)
  - INJECTION SITE PRURITUS [None]
  - INJECTION SITE URTICARIA [None]
  - INJECTION SITE WARMTH [None]
